FAERS Safety Report 23967395 (Version 1)
Quarter: 2024Q2

REPORT INFORMATION
  Report Type: Spontaneous
  Country: US (occurrence: None)
  Receive Date: 20240612
  Receipt Date: 20240612
  Transmission Date: 20240716
  Serious: Yes (Hospitalization)
  Sender: FDA-Public Use
  Company Number: None

PATIENT
  Sex: Male

DRUGS (1)
  1. ABIRATERONE ACETATE [Suspect]
     Active Substance: ABIRATERONE ACETATE

REACTIONS (6)
  - Nausea [None]
  - Vomiting [None]
  - Dizziness [None]
  - Diarrhoea [None]
  - Asthenia [None]
  - Electrolyte imbalance [None]
